FAERS Safety Report 10662694 (Version 2)
Quarter: 2015Q1

REPORT INFORMATION
  Report Type: Spontaneous
  Country: US (occurrence: US)
  Receive Date: 20141218
  Receipt Date: 20150128
  Transmission Date: 20150720
  Serious: No
  Sender: FDA-Public Use
  Company Number: US-PFIZER INC-2014340315

PATIENT
  Age: 8 Year
  Weight: 35 kg

DRUGS (1)
  1. CHILDRENS ADVIL [Suspect]
     Active Substance: IBUPROFEN
     Dosage: THREE TEASPOONS, UNK

REACTIONS (4)
  - Urticaria [Unknown]
  - Lip disorder [Unknown]
  - Lip swelling [Unknown]
  - Skin disorder [Unknown]
